FAERS Safety Report 12632620 (Version 2)
Quarter: 2016Q3

REPORT INFORMATION
  Report Type: Spontaneous
  Country: US (occurrence: US)
  Receive Date: 20160808
  Receipt Date: 20160808
  Transmission Date: 20161109
  Serious: No
  Sender: FDA-Public Use
  Company Number: US-BEH-2015056256

PATIENT
  Sex: Male
  Weight: 118 kg

DRUGS (23)
  1. HUMALOG [Concomitant]
     Active Substance: INSULIN LISPRO
  2. GABAPENTIN. [Concomitant]
     Active Substance: GABAPENTIN
  3. LIDOCAINE. [Concomitant]
     Active Substance: LIDOCAINE
  4. NEURONTIN [Concomitant]
     Active Substance: GABAPENTIN
  5. FUROSEMIDE. [Concomitant]
     Active Substance: FUROSEMIDE
  6. HIZENTRA [Suspect]
     Active Substance: HUMAN IMMUNOGLOBULIN G
     Route: 058
  7. ACETAMINOPHEN. [Concomitant]
     Active Substance: ACETAMINOPHEN
  8. CRESTOR [Concomitant]
     Active Substance: ROSUVASTATIN CALCIUM
  9. VERAPAMIL [Concomitant]
     Active Substance: VERAPAMIL HYDROCHLORIDE
  10. WARFARIN [Concomitant]
     Active Substance: WARFARIN
  11. SLO-NIACIN [Concomitant]
     Active Substance: DIETARY SUPPLEMENT
  12. HIZENTRA [Suspect]
     Active Substance: HUMAN IMMUNOGLOBULIN G
     Indication: IMMUNODEFICIENCY COMMON VARIABLE
     Route: 058
  13. OMEPRAZOLE. [Concomitant]
     Active Substance: OMEPRAZOLE
  14. DIPHENHYDRAMINE. [Concomitant]
     Active Substance: DIPHENHYDRAMINE
  15. EPIPEN [Concomitant]
     Active Substance: EPINEPHRINE
  16. FISH OIL [Concomitant]
     Active Substance: FISH OIL
  17. LISINOPRIL. [Concomitant]
     Active Substance: LISINOPRIL
  18. CLONIDINE. [Concomitant]
     Active Substance: CLONIDINE
  19. METOPROLOL SUCC ER [Concomitant]
     Active Substance: METOPROLOL SUCCINATE
  20. FOLIC ACID. [Concomitant]
     Active Substance: FOLIC ACID
  21. LIDOCAINE/ PRILOCAINE [Concomitant]
  22. VITAMIN D3 [Concomitant]
     Active Substance: CHOLECALCIFEROL
  23. OXYGEN. [Concomitant]
     Active Substance: OXYGEN

REACTIONS (1)
  - Sinusitis [Unknown]
